FAERS Safety Report 5802357-3 (Version None)
Quarter: 2008Q3

REPORT INFORMATION
  Report Type: 
  Country: None (occurrence: None)
  Receive Date: 20080702
  Receipt Date: 20080630
  Transmission Date: 20090109
  Serious: Yes (Death, Life-Threatening)
  Sender: FDA-Public Use
  Company Number: 2007SP000595

PATIENT
  Age: 67 Year
  Sex: Male
  Weight: 46 kg

DRUGS (5)
  1. TEMODAL [Suspect]
     Indication: ANAPLASTIC ASTROCYTOMA
     Dosage: 150 MG/M2; QD; PO
     Route: 048
     Dates: start: 20061121, end: 20061125
  2. DECADRON [Concomitant]
  3. DECADRON [Concomitant]
  4. EXCEGRAN [Concomitant]
  5. GLYCEOL [Concomitant]

REACTIONS (6)
  - CARDIAC DISORDER [None]
  - HYPOTENSION [None]
  - LYMPHOCYTE COUNT DECREASED [None]
  - PNEUMONIA CYTOMEGALOVIRAL [None]
  - TUMOUR NECROSIS [None]
  - URINARY TRACT INFECTION BACTERIAL [None]
